FAERS Safety Report 10244306 (Version 1)
Quarter: 2014Q2

REPORT INFORMATION
  Report Type: Spontaneous
  Country: GB (occurrence: GB)
  Receive Date: 20140618
  Receipt Date: 20140618
  Transmission Date: 20141212
  Serious: Yes (Disabling)
  Sender: FDA-Public Use
  Company Number: GB-WATSON-2014-12658

PATIENT
  Age: 32 Year
  Sex: Female
  Weight: 59 kg

DRUGS (2)
  1. SERTRALINE (UNKNOWN) [Suspect]
     Indication: GENERALISED ANXIETY DISORDER
     Dosage: 100 MG, DAILY
     Route: 048
  2. SERTRALINE (UNKNOWN) [Suspect]
     Dosage: 50 MG, DAILY
     Route: 048

REACTIONS (3)
  - Apathy [Recovered/Resolved]
  - Decreased interest [Recovered/Resolved]
  - Abnormal behaviour [Recovered/Resolved]
